FAERS Safety Report 6700485-1 (Version None)
Quarter: 2010Q2

REPORT INFORMATION
  Report Type: 
  Country: None (occurrence: None)
  Receive Date: 20100428
  Receipt Date: 20100421
  Transmission Date: 20101027
  Serious: Yes (Death)
  Sender: FDA-Public Use
  Company Number: A0774351C

PATIENT
  Age: 74 Year
  Sex: Male

DRUGS (4)
  1. PROMACTA [Suspect]
     Indication: IDIOPATHIC THROMBOCYTOPENIC PURPURA
     Dosage: 75MG PER DAY
     Dates: start: 20090217, end: 20091221
  2. NYSTATIN [Concomitant]
  3. HYDROCODONE BITARTRATE [Concomitant]
  4. OXYCONTIN [Concomitant]

REACTIONS (2)
  - DISEASE PROGRESSION [None]
  - IDIOPATHIC THROMBOCYTOPENIC PURPURA [None]
